FAERS Safety Report 25448945 (Version 1)
Quarter: 2025Q2

REPORT INFORMATION
  Report Type: Spontaneous
  Country: US (occurrence: US)
  Receive Date: 20250618
  Receipt Date: 20250618
  Transmission Date: 20250716
  Serious: No
  Sender: ELI LILLY AND COMPANY
  Company Number: US-ELI_LILLY_AND_COMPANY-US202506015001

PATIENT
  Age: 53 Year
  Sex: Male

DRUGS (4)
  1. TRULICITY [Suspect]
     Active Substance: DULAGLUTIDE
     Indication: Diabetes mellitus
     Route: 065
     Dates: start: 2024
  2. TRULICITY [Suspect]
     Active Substance: DULAGLUTIDE
     Route: 065
  3. TRULICITY [Suspect]
     Active Substance: DULAGLUTIDE
     Route: 065
  4. TRULICITY [Suspect]
     Active Substance: DULAGLUTIDE
     Route: 065

REACTIONS (1)
  - Drug ineffective [Unknown]
